FAERS Safety Report 18120126 (Version 1)
Quarter: 2020Q3

REPORT INFORMATION
  Report Type: Spontaneous
  Country: CN (occurrence: CN)
  Receive Date: 20200806
  Receipt Date: 20200806
  Transmission Date: 20201103
  Serious: Yes (Hospitalization, Other)
  Sender: FDA-Public Use
  Company Number: CN-ELI_LILLY_AND_COMPANY-CN202007011659

PATIENT
  Age: 67 Year
  Sex: Female

DRUGS (7)
  1. GLUCOSE [Concomitant]
     Active Substance: DEXTROSE
     Indication: VEHICLE SOLUTION USE
     Dosage: 250 ML, SINGLE DOSAGE
     Route: 041
     Dates: start: 20200629, end: 20200629
  2. ALIMTA [Suspect]
     Active Substance: PEMETREXED DISODIUM
     Indication: LUNG NEOPLASM MALIGNANT
     Dosage: 300 MG, SINGLE DOSAGE
     Route: 041
     Dates: start: 20200629, end: 20200629
  3. CARBOPLATIN. [Suspect]
     Active Substance: CARBOPLATIN
     Indication: LUNG NEOPLASM MALIGNANT
     Dosage: 500 MG, SINGLE DOSAGE
     Route: 041
     Dates: start: 20200629, end: 20200629
  4. ALIMTA [Suspect]
     Active Substance: PEMETREXED DISODIUM
     Dosage: 500 MG, SINGLE DOSAGE
     Route: 041
     Dates: start: 20200629, end: 20200629
  5. ONDANSETRON HYDROCHLORIDE. [Suspect]
     Active Substance: ONDANSETRON HYDROCHLORIDE
     Indication: PROPHYLAXIS OF NAUSEA AND VOMITING
     Dosage: 8 MG, SINGLE DOSAGE
     Route: 041
     Dates: start: 20200629, end: 20200629
  6. SODIUM CHLORIDE. [Concomitant]
     Active Substance: SODIUM CHLORIDE
     Indication: VEHICLE SOLUTION USE
     Dosage: 50 ML, SINGLE DOSAGE
     Route: 041
     Dates: start: 20200629, end: 20200629
  7. SODIUM CHLORIDE. [Concomitant]
     Active Substance: SODIUM CHLORIDE
     Indication: VEHICLE SOLUTION USE
     Dosage: 100 ML, SINGLE DOSAGE
     Route: 041

REACTIONS (6)
  - Cardiac disorder [Unknown]
  - Sinus tachycardia [Recovering/Resolving]
  - Tremor [Recovering/Resolving]
  - Chest discomfort [Recovering/Resolving]
  - Chest pain [Recovering/Resolving]
  - Ventricular extrasystoles [Unknown]

NARRATIVE: CASE EVENT DATE: 20200630
